FAERS Safety Report 15535607 (Version 1)
Quarter: 2018Q4

REPORT INFORMATION
  Report Type: Spontaneous
  Country: US (occurrence: US)
  Receive Date: 20181022
  Receipt Date: 20181022
  Transmission Date: 20190205
  Serious: No
  Sender: FDA-Public Use
  Company Number: US-PFIZER INC-2018418226

PATIENT
  Age: 67 Year
  Sex: Female
  Weight: 109 kg

DRUGS (2)
  1. ANASTROZOLE. [Suspect]
     Active Substance: ANASTROZOLE
     Indication: BREAST CANCER FEMALE
     Dosage: 1 MG, 1X/DAY (IN THE EVENING)
  2. IBRANCE [Suspect]
     Active Substance: PALBOCICLIB
     Indication: BREAST CANCER METASTATIC
     Dosage: 125 MG, CYCLIC (ONCE A DAY IN THE MORNING FOR 21 DAYS, THEN OFF 7 DAYS)
     Route: 048
     Dates: start: 201708

REACTIONS (6)
  - Insomnia [Unknown]
  - Bone pain [Recovering/Resolving]
  - Arthralgia [Recovering/Resolving]
  - Feeling abnormal [Recovered/Resolved]
  - Exostosis [Unknown]
  - Arthritis [Unknown]

NARRATIVE: CASE EVENT DATE: 201708
